FAERS Safety Report 7930443-0 (Version None)
Quarter: 2011Q4

REPORT INFORMATION
  Report Type: 
  Country: None (occurrence: None)
  Receive Date: 20111117
  Receipt Date: 20111103
  Transmission Date: 20120403
  Serious: Yes (Other)
  Sender: FDA-Public Use
  Company Number: 1103671

PATIENT
  Age: 54 Year
  Sex: Female

DRUGS (18)
  1. METHOTREXATE [Suspect]
     Indication: PRECURSOR T-LYMPHOBLASTIC LYMPHOMA/LEUKAEMIA
     Dosage: 12 MG, INTRATHECAL
     Route: 037
  2. DEXAMETHASONE [Suspect]
     Indication: PRECURSOR T-LYMPHOBLASTIC LYMPHOMA/LEUKAEMIA
     Dosage: 40 MG/DAY INTRAVENOUS (NOT OTHERWISE SPECIFIED)
     Route: 042
  3. METHOTREXATE [Suspect]
     Indication: PRECURSOR T-LYMPHOBLASTIC LYMPHOMA/LEUKAEMIA
     Dosage: 200 MG/M^2 INTRAVENOUS (NOT OTHERWISE SPECIFIED ; 800 MG/M^2 INTRAVENOUS (NOT OTHERWISE SPECIFIED)
     Route: 042
  4. (ACEAMINOPHEN) [Concomitant]
  5. (SULFAMETHOXAZOLE AND TRIMETHOPRIM) [Concomitant]
  6. (ALEMTUZUMAB) [Suspect]
     Indication: PRECURSOR T-LYMPHOBLASTIC LYMPHOMA/LEUKAEMIA
     Dosage: 30 MG, SUBCUTANEOUS
     Route: 058
  7. CYCLOPHOSPHAMIDE [Suspect]
     Indication: PRECURSOR T-LYMPHOBLASTIC LYMPHOMA/LEUKAEMIA
     Dosage: 300 MG/M^2, INTRAVENOUS (NOT OTHERWISE SPECIFIED)
     Route: 042
  8. (MESNA) [Concomitant]
  9. ACYCLOVIR [Concomitant]
  10. FLUCONAZOLE [Concomitant]
  11. CYTARABINE [Suspect]
     Indication: PRECURSOR T-LYMPHOBLASTIC LYMPHOMA/LEUKAEMIA
     Dosage: 3 G/M^2 TWICE A DAY INTRAVENOUS (NOT OTHERWISE SPECIFIED)
     Route: 042
  12. VINCRISTINE SULFATE [Suspect]
     Indication: PRECURSOR T-LYMPHOBLASTIC LYMPHOMA/LEUKAEMIA
     Dosage: 1/4 MG/M^2, INTRAVENOUS BOLUS
     Route: 040
  13. DOXORUBICIN HCL [Suspect]
     Indication: PRECURSOR T-LYMPHOBLASTIC LYMPHOMA/LEUKAEMIA
     Dosage: 50 MG/M^2
  14. DIPHENHYDRAMINE HCL [Concomitant]
  15. (FILGRASTIM) [Concomitant]
  16. GANCICLOVIR [Concomitant]
  17. CYTARABINE [Suspect]
     Indication: PRECURSOR T-LYMPHOBLASTIC LYMPHOMA/LEUKAEMIA
     Dosage: 100 MG, INTRATHECAL
     Route: 037
  18. LEUCOVORIN CALCIUM [Concomitant]

REACTIONS (3)
  - CYTOMEGALOVIRUS INFECTION [None]
  - NEUTROPENIA [None]
  - CONDITION AGGRAVATED [None]
